FAERS Safety Report 6878318-2 (Version None)
Quarter: 2010Q3

REPORT INFORMATION
  Report Type: 
  Country: None (occurrence: None)
  Receive Date: 20100728
  Receipt Date: 20100713
  Transmission Date: 20110219
  Serious: No
  Sender: FDA-Public Use
  Company Number: US-TEVA-242166USA

PATIENT
  Sex: Female
  Weight: 63.106 kg

DRUGS (4)
  1. ALBUTEROL SULFATE AUTOHALER [Suspect]
     Indication: BRONCHITIS
     Route: 055
  2. MOMETASONE FUROATE [Concomitant]
  3. FLUTICASONE PROPIONATE [Concomitant]
  4. CETIRIZINE HYDROCHLORIDE [Concomitant]

REACTIONS (1)
  - BREATH ALCOHOL TEST POSITIVE [None]
